FAERS Safety Report 9200270 (Version 1)
Quarter: 2013Q1

REPORT INFORMATION
  Report Type: Spontaneous
  Country: IT (occurrence: IT)
  Receive Date: 20130329
  Receipt Date: 20130329
  Transmission Date: 20140127
  Serious: Yes (Hospitalization)
  Sender: FDA-Public Use
  Company Number: CHPA2013IT005494

PATIENT
  Sex: Male

DRUGS (2)
  1. IBUPROFEN [Suspect]
     Dosage: UNK, UNK
     Route: 065
  2. PARACETAMOL [Suspect]
     Dosage: UNK, UNK
     Route: 065

REACTIONS (4)
  - Generalised erythema [Recovered/Resolved]
  - Eyelid oedema [Recovered/Resolved]
  - Lip oedema [Recovered/Resolved]
  - Pruritus generalised [Recovered/Resolved]
